FAERS Safety Report 15735782 (Version 1)
Quarter: 2018Q4

REPORT INFORMATION
  Report Type: Report from Study
  Country: FR (occurrence: FR)
  Receive Date: 20181218
  Receipt Date: 20181218
  Transmission Date: 20190205
  Serious: Yes (Disabling, Other)
  Sender: FDA-Public Use
  Company Number: FR-BRISTOL-MYERS SQUIBB COMPANY-BMS-2018-116438

PATIENT
  Age: 77 Year
  Sex: Male
  Weight: 75 kg

DRUGS (3)
  1. STABLON [Concomitant]
     Active Substance: TIANEPTINE
     Indication: DEPRESSION
     Dosage: UNK
     Route: 065
     Dates: start: 201705
  2. LYRICA [Concomitant]
     Active Substance: PREGABALIN
     Indication: ANXIETY
     Dosage: UNK
     Route: 065
     Dates: start: 201705
  3. NIVOLUMAB [Suspect]
     Active Substance: NIVOLUMAB
     Indication: SKIN CANCER
     Dosage: 240 MG, UNK
     Route: 042
     Dates: start: 20170731, end: 20180316

REACTIONS (1)
  - Parkinson^s disease [Not Recovered/Not Resolved]

NARRATIVE: CASE EVENT DATE: 20180330
